FAERS Safety Report 6743598-0 (Version None)
Quarter: 2010Q2

REPORT INFORMATION
  Report Type: 
  Country: None (occurrence: None)
  Receive Date: 20100527
  Receipt Date: 20100517
  Transmission Date: 20101027
  Serious: Yes (Other)
  Sender: FDA-Public Use
  Company Number: ES-ROCHE-703678

PATIENT
  Sex: Female

DRUGS (6)
  1. TRASTUZUMAB [Suspect]
     Indication: BREAST CANCER
     Dosage: FORM, FREQUENCY UNSPECIFIED, LOADING DOSE
     Route: 042
     Dates: start: 20090729
  2. TRASTUZUMAB [Suspect]
     Dosage: FORM:UNSPECIFIED, FREQUENCY: WEEKLY
     Route: 042
  3. TRASTUZUMAB [Suspect]
     Dosage: FORM, FREQUENCY: UNSPECIFIED
     Route: 042
  4. LAPATINIB [Suspect]
     Indication: BREAST CANCER
     Dosage: FORM: UNSPECIFIED, FREQUENCY: PER DAY
     Route: 048
     Dates: start: 20090729, end: 20090827
  5. LAPATINIB [Suspect]
     Dosage: FORM: UNSPECIFIED, FREQUENCY: PER DAY
     Route: 048
     Dates: start: 20090910, end: 20090917
  6. PACLITAXEL [Suspect]
     Indication: BREAST CANCER
     Dosage: FORM, DOSE: UNSPECIFIED, FREQUENCY: WEEKLY
     Route: 042
     Dates: start: 20090730

REACTIONS (1)
  - ALANINE AMINOTRANSFERASE INCREASED [None]
